FAERS Safety Report 11232265 (Version 2)
Quarter: 2015Q3

REPORT INFORMATION
  Report Type: Spontaneous
  Country: IL (occurrence: None)
  Receive Date: 20150623
  Receipt Date: 20150707
  Transmission Date: 20151125
  Serious: Yes (Life-Threatening, Hospitalization)
  Sender: FDA-Public Use
  Company Number: 2015IL005248

PATIENT
  Age: 48 Year
  Sex: Male

DRUGS (15)
  1. IPRATROPIUM BROMIDE (IPRATROPIUM BROMIDE) [Concomitant]
  2. RESPRIN  (SULFAMETHOXAZOLE, TRIMETHOPRIM) [Concomitant]
  3. GLASSIA [Suspect]
     Active Substance: .ALPHA.1-PROTEINASE INHIBITOR HUMAN
     Indication: GRAFT VERSUS HOST DISEASE
     Dates: start: 20150507
  4. BECLOMETHASONE DIPROPIONATE (BECLOMETASONE DIPROPIONATE) [Concomitant]
  5. VALACYCLOVIR (VALACICLOVIR HYDROCHLORIDE) [Concomitant]
  6. MONTELUKAST [Concomitant]
     Active Substance: MONTELUKAST SODIUM
  7. TACROLIMUS (TACROLIMUS) [Concomitant]
     Active Substance: TACROLIMUS
  8. IMATINIB (IMATINIB) [Concomitant]
  9. ITRACONAZOLE (ITRACONAZOLE) [Concomitant]
     Active Substance: ITRACONAZOLE
  10. SALBUTAMOL (SALBUTAMOL) [Concomitant]
     Active Substance: ALBUTEROL
  11. OMEPRAZOLE (OMEPRAZOLE) [Concomitant]
     Active Substance: OMEPRAZOLE
  12. INSULIN (INSULIN) [Concomitant]
     Active Substance: INSULIN NOS
  13. BROTIZOLAM (BROTIZOLAM) [Concomitant]
  14. AZATHIOPRINE. [Concomitant]
     Active Substance: AZATHIOPRINE
  15. PREDNISONE (PREDNISONE) [Concomitant]
     Active Substance: PREDNISONE

REACTIONS (5)
  - Off label use [None]
  - Hypokalaemia [None]
  - Hyponatraemia [None]
  - Therapy cessation [None]
  - Dyspnoea [None]

NARRATIVE: CASE EVENT DATE: 20150604
